FAERS Safety Report 5079326-7 (Version None)
Quarter: 2006Q3

REPORT INFORMATION
  Report Type: 
  Country: None (occurrence: None)
  Receive Date: 20060808
  Receipt Date: 20060730
  Transmission Date: 20061208
  Serious: Yes (Other)
  Sender: FDA-Public Use
  Company Number: 2006093020

PATIENT
  Age: 11 Month
  Sex: Male

DRUGS (1)
  1. BENGAY (MENTHOL) [Suspect]
     Indication: ACCIDENTAL EXPOSURE
     Dosage: ORAL
     Route: 048
     Dates: start: 20060730, end: 20060730

REACTIONS (1)
  - ACCIDENTAL DRUG INTAKE BY CHILD [None]
